FAERS Safety Report 10004777 (Version 1)
Quarter: 2014Q1

REPORT INFORMATION
  Report Type: Spontaneous
  Country: IT (occurrence: IT)
  Receive Date: 20140312
  Receipt Date: 20140312
  Transmission Date: 20141002
  Serious: Yes (Other)
  Sender: FDA-Public Use
  Company Number: IT-WATSON-2014-04319

PATIENT
  Age: 40 Year
  Sex: Female

DRUGS (1)
  1. RISPERIDONE ACTAVIS [Suspect]
     Indication: ACUTE PSYCHOSIS
     Dosage: 2 MG, DAILY
     Route: 048
     Dates: start: 20140101, end: 20140107

REACTIONS (3)
  - Delusion [Not Recovered/Not Resolved]
  - Delusional perception [Not Recovered/Not Resolved]
  - Product substitution issue [Not Recovered/Not Resolved]
